FAERS Safety Report 23727220 (Version 1)
Quarter: 2024Q2

REPORT INFORMATION
  Report Type: Spontaneous
  Country: GB (occurrence: GB)
  Receive Date: 20240410
  Receipt Date: 20240410
  Transmission Date: 20240716
  Serious: Yes (Hospitalization)
  Sender: FDA-Public Use
  Company Number: GB-MYLANLABS-2023M1102195

PATIENT
  Age: 59 Year
  Sex: Female

DRUGS (2)
  1. CLOZARIL [Suspect]
     Active Substance: CLOZAPINE
     Indication: Schizophrenia
     Dosage: UNK
     Route: 048
     Dates: start: 20230106
  2. CLOZARIL [Suspect]
     Active Substance: CLOZAPINE
     Dosage: UNK (50MG IN THE MORNING AND 250 AT NIGHT)
     Route: 048
     Dates: start: 20231113

REACTIONS (4)
  - Hospitalisation [Unknown]
  - White blood cell count decreased [Recovered/Resolved]
  - Eosinophil count decreased [Not Recovered/Not Resolved]
  - Off label use [Unknown]

NARRATIVE: CASE EVENT DATE: 20240205
